FAERS Safety Report 17486685 (Version 1)
Quarter: 2020Q1

REPORT INFORMATION
  Report Type: Spontaneous
  Country: US (occurrence: US)
  Receive Date: 20200303
  Receipt Date: 20200303
  Transmission Date: 20200409
  Serious: No
  Sender: FDA-Public Use
  Company Number: US-TEVA-2020-US-1192912

PATIENT
  Sex: Female

DRUGS (1)
  1. DILTIAZEM HCL [Suspect]
     Active Substance: DILTIAZEM HYDROCHLORIDE
     Route: 065

REACTIONS (1)
  - Malaise [Unknown]
